FAERS Safety Report 19168778 (Version 1)
Quarter: 2021Q2

REPORT INFORMATION
  Report Type: Spontaneous
  Country: GB (occurrence: GB)
  Receive Date: 20210422
  Receipt Date: 20210422
  Transmission Date: 20210717
  Serious: Yes (Life-Threatening, Hospitalization, Disabling, Other)
  Sender: FDA-Public Use
  Company Number: GB-TEVA-2021-GB-1902110

PATIENT
  Age: 20 Year
  Sex: Female
  Weight: 96 kg

DRUGS (1)
  1. ARIPIPRAZOLE. [Suspect]
     Active Substance: ARIPIPRAZOLE
     Indication: SCHIZOAFFECTIVE DISORDER
     Dosage: 15MG
     Route: 048
     Dates: start: 20150101, end: 20210412

REACTIONS (1)
  - Gambling [Not Recovered/Not Resolved]

NARRATIVE: CASE EVENT DATE: 20150301
